FAERS Safety Report 22038934 (Version 1)
Quarter: 2023Q1

REPORT INFORMATION
  Report Type: Spontaneous
  Country: US (occurrence: US)
  Receive Date: 20230227
  Receipt Date: 20230227
  Transmission Date: 20230418
  Serious: No
  Sender: FDA-Public Use
  Company Number: US-IGSA-BIG0021498

PATIENT
  Sex: Male

DRUGS (1)
  1. PROLASTIN-C LIQUID [Suspect]
     Active Substance: .ALPHA.1-PROTEINASE INHIBITOR HUMAN
     Indication: Alpha-1 antitrypsin deficiency
     Dosage: UNK UNKNOWN, UNKNOWN
     Route: 042

REACTIONS (4)
  - Infusion site swelling [Recovering/Resolving]
  - Infusion site extravasation [Unknown]
  - Infusion site bruising [Unknown]
  - Infusion site discolouration [Unknown]
